FAERS Safety Report 4511328-9 (Version None)
Quarter: 2004Q4

REPORT INFORMATION
  Report Type: 
  Country: None (occurrence: None)
  Receive Date: 20041129
  Receipt Date: 20041116
  Transmission Date: 20050328
  Serious: Yes (Hospitalization, Other)
  Sender: FDA-Public Use
  Company Number: DE-JNJFOC-20041104094

PATIENT
  Age: 13 Year
  Sex: Male

DRUGS (1)
  1. CONCERTA [Suspect]
     Route: 049

REACTIONS (2)
  - CONCUSSION [None]
  - SUPRAVENTRICULAR EXTRASYSTOLES [None]
